FAERS Safety Report 12210669 (Version 1)
Quarter: 2016Q1

REPORT INFORMATION
  Report Type: Spontaneous
  Country: US (occurrence: None)
  Receive Date: 20160324
  Receipt Date: 20160324
  Transmission Date: 20160526
  Serious: Yes (Other)
  Sender: FDA-Public Use
  Company Number: None

PATIENT
  Age: 76 Year
  Sex: Female
  Weight: 67.13 kg

DRUGS (11)
  1. ASPRIN [Concomitant]
     Active Substance: ASPIRIN
  2. TRAVATAN [Concomitant]
     Active Substance: TRAVOPROST
  3. PRAVASTATIN [Concomitant]
     Active Substance: PRAVASTATIN\PRAVASTATIN SODIUM
  4. RABEPRAZOLE GENERIC FOR ACIPHEX [Suspect]
     Active Substance: RABEPRAZOLE
     Indication: GASTROOESOPHAGEAL REFLUX DISEASE
     Dosage: 20 MG 1 PILL ONCE DAILY BY MOUTH
     Route: 048
     Dates: start: 20150610, end: 20150610
  5. PROBIOTIC [Concomitant]
     Active Substance: PROBIOTICS NOS
  6. COQ10 [Concomitant]
     Active Substance: UBIDECARENONE
  7. TIROSINT [Concomitant]
     Active Substance: LEVOTHYROXINE SODIUM
  8. GABAPENTIN. [Concomitant]
     Active Substance: GABAPENTIN
  9. VITAMIN D3 [Concomitant]
     Active Substance: CHOLECALCIFEROL
  10. COSOPT [Concomitant]
     Active Substance: DORZOLAMIDE HYDROCHLORIDE\TIMOLOL MALEATE
  11. ALIVE WOMENS+ VITAMIN [Concomitant]

REACTIONS (6)
  - Asthenia [None]
  - Disturbance in attention [None]
  - Disorientation [None]
  - Activities of daily living impaired [None]
  - Dizziness [None]
  - Illogical thinking [None]

NARRATIVE: CASE EVENT DATE: 20150610
